FAERS Safety Report 18960178 (Version 1)
Quarter: 2021Q1

REPORT INFORMATION
  Report Type: Spontaneous
  Country: JP (occurrence: JP)
  Receive Date: 20210303
  Receipt Date: 20210303
  Transmission Date: 20210420
  Serious: Yes (Other)
  Sender: FDA-Public Use
  Company Number: JP-ORGANON-O2102JPN002123J

PATIENT
  Age: 83 Year
  Sex: Female
  Weight: 47.4 kg

DRUGS (3)
  1. DESALEX [Suspect]
     Active Substance: DESLORATADINE
     Indication: RHINITIS ALLERGIC
     Dosage: 5 MILLIGRAM, ONCE A DAY AFTER SUPPER
     Route: 048
     Dates: start: 20210210, end: 20210212
  2. CARBOCISTEINE [Concomitant]
     Active Substance: CARBOCYSTEINE
     Indication: PRODUCTIVE COUGH
     Dosage: 500 MILLIGRAM, TID
     Route: 048
     Dates: start: 20210210, end: 20210213
  3. ASTOMIN [DIMEMORFAN PHOSPHATE] [Concomitant]
     Active Substance: DIMEMORFAN PHOSPHATE
     Indication: PRODUCTIVE COUGH
     Dosage: 10 MILLIGRAM, TID
     Route: 048
     Dates: start: 20210210, end: 20210213

REACTIONS (1)
  - Urinary retention [Recovered/Resolved]

NARRATIVE: CASE EVENT DATE: 20210212
